FAERS Safety Report 13675150 (Version 2)
Quarter: 2017Q2

REPORT INFORMATION
  Report Type: Spontaneous
  Country: JP (occurrence: JP)
  Receive Date: 20170621
  Receipt Date: 20170622
  Transmission Date: 20170830
  Serious: Yes (Other)
  Sender: FDA-Public Use
  Company Number: JP-PFIZER INC-2017267604

PATIENT
  Age: 70 Year
  Sex: Female

DRUGS (11)
  1. WARFARIN [Concomitant]
     Active Substance: WARFARIN
     Dosage: 4 MG, DAILY
     Route: 048
  2. DEPAS [Concomitant]
     Active Substance: ETIZOLAM
     Dosage: 0.5 MG, DAILY
     Route: 048
  3. ALDACTONE A 25MG [Suspect]
     Active Substance: SPIRONOLACTONE
     Dosage: 50 MG, DAILY
     Route: 048
     Dates: start: 20110325
  4. PARIET [Concomitant]
     Active Substance: RABEPRAZOLE SODIUM
     Dosage: 10 MG, DAILY
     Route: 048
  5. LASIX [Concomitant]
     Active Substance: FUROSEMIDE
     Dosage: 20 MG, DAILY
     Route: 048
  6. ARTIST [Concomitant]
     Active Substance: CARVEDILOL
     Dosage: 5 MG, DAILY
     Route: 048
  7. LENDORMIN [Concomitant]
     Active Substance: BROTIZOLAM
     Dosage: 0.25 MG, DAILY
     Route: 048
  8. SLOW K [Concomitant]
     Active Substance: POTASSIUM CHLORIDE
     Dosage: 1200 MG, DAILY
     Route: 048
  9. BAYASPIRIN [Concomitant]
     Active Substance: ASPIRIN
     Dosage: 100 MG, DAILY
     Route: 048
  10. PURSENNIDE [Concomitant]
     Active Substance: SENNOSIDES A AND B
     Dosage: 24 MG, DAILY
     Route: 048
  11. LASIX [Concomitant]
     Active Substance: FUROSEMIDE
     Dosage: 40 MG, DAILY
     Route: 048

REACTIONS (2)
  - Cardiac failure [Unknown]
  - Condition aggravated [Unknown]
